FAERS Safety Report 6551949-5 (Version None)
Quarter: 2010Q1

REPORT INFORMATION
  Report Type: 
  Country: None (occurrence: None)
  Receive Date: 20100126
  Receipt Date: 20100125
  Transmission Date: 20100710
  Serious: Yes (Other)
  Sender: FDA-Public Use
  Company Number: US-SANOFI-AVENTIS-US90-06709

PATIENT
  Age: 45 Year
  Sex: Female

DRUGS (9)
  1. DOCETAXEL [Suspect]
     Indication: BREAST CANCER
     Route: 042
     Dates: start: 19980306, end: 19980618
  2. DOXORUBICIN HCL [Suspect]
     Indication: BREAST CANCER
     Route: 042
     Dates: start: 19980306, end: 19980618
  3. CYCLOPHOSPHAMIDE [Suspect]
     Indication: BREAST CANCER
     Route: 042
     Dates: start: 19980306, end: 19980618
  4. CAPOTEN [Concomitant]
  5. NORVASC [Concomitant]
  6. K-DUR [Concomitant]
  7. LASIX [Concomitant]
  8. PREDNISONE [Concomitant]
  9. COREG [Concomitant]

REACTIONS (4)
  - ASTHENIA [None]
  - CARDIOMYOPATHY [None]
  - DYSPNOEA [None]
  - EJECTION FRACTION DECREASED [None]
